FAERS Safety Report 5751079-6 (Version None)
Quarter: 2008Q2

REPORT INFORMATION
  Report Type: 
  Country: None (occurrence: None)
  Receive Date: 20080527
  Receipt Date: 20080219
  Transmission Date: 20081010
  Serious: No
  Sender: FDA-Public Use
  Company Number: 2008SP004047

PATIENT
  Age: 32 Year
  Sex: Male
  Weight: 107.0489 kg

DRUGS (2)
  1. NOXAFIL [Suspect]
     Indication: FUNGAL INFECTION
     Dosage: 400 MG;BID;PO
     Route: 048
     Dates: start: 20071015, end: 20071022
  2. VORICONAZOLE [Concomitant]

REACTIONS (1)
  - RASH [None]
